FAERS Safety Report 6932633-2 (Version None)
Quarter: 2010Q3

REPORT INFORMATION
  Report Type: 
  Country: None (occurrence: None)
  Receive Date: 20100817
  Receipt Date: 20100803
  Transmission Date: 20110219
  Serious: Yes (Other)
  Sender: FDA-Public Use
  Company Number: 015753

PATIENT
  Sex: Female

DRUGS (1)
  1. CIMZIA [Suspect]
     Indication: CROHN'S DISEASE
     Dosage: 400 MG 1X/MONTH SUBCUTANEOUS
     Route: 058
     Dates: start: 20100402, end: 20100717

REACTIONS (8)
  - ALCOHOL USE [None]
  - ARTHRALGIA [None]
  - BACK PAIN [None]
  - BREAST MASS [None]
  - BREAST PAIN [None]
  - DIARRHOEA [None]
  - NAUSEA [None]
  - VAGINAL HAEMORRHAGE [None]
